FAERS Safety Report 7069712-8 (Version None)
Quarter: 2010Q4

REPORT INFORMATION
  Report Type: 
  Country: None (occurrence: None)
  Receive Date: 20101028
  Receipt Date: 20100510
  Transmission Date: 20110411
  Serious: No
  Sender: FDA-Public Use
  Company Number: US-WYE-H15079210

PATIENT
  Sex: Male
  Weight: 84.9 kg

DRUGS (2)
  1. EFFEXOR [Suspect]
     Indication: PSYCHOTIC DISORDER
     Route: 048
  2. VENLAFAXINE HYDROCHLORIDE [Suspect]

REACTIONS (2)
  - CONFUSIONAL STATE [None]
  - DISORIENTATION [None]
